FAERS Safety Report 12584281 (Version 2)
Quarter: 2017Q1

REPORT INFORMATION
  Report Type: Report from Study
  Country: KR (occurrence: KR)
  Receive Date: 20160722
  Receipt Date: 20170228
  Transmission Date: 20170428
  Serious: Yes (Life-Threatening, Hospitalization)
  Sender: FDA-Public Use
  Company Number: KR-PFIZER INC-2016354509

PATIENT

DRUGS (5)
  1. AMLODIPINE [Suspect]
     Active Substance: AMLODIPINE BESYLATE
     Indication: HYPERTENSION
     Dosage: 5 MG (BEFORE THE PREGNANCY)
     Route: 064
  2. EPOETIN ALFA [Suspect]
     Active Substance: ERYTHROPOIETIN
     Indication: ANAEMIA
     Dosage: 240/74.8 IU/KG/WK)
     Route: 064
  3. ATENOLOL. [Suspect]
     Active Substance: ATENOLOL
     Indication: HYPERTENSION
     Dosage: 25 MG, 1X/DAY (DURING THE PREGNANCY; AT 22 GA)
     Route: 064
  4. HYDRALAZINE [Suspect]
     Active Substance: HYDRALAZINE HYDROCHLORIDE
     Indication: PRE-ECLAMPSIA
     Dosage: 10 MG IV FOR 2 D (AT THE DELIVERY)
     Route: 064
  5. IRON SUPPLEMENT [Suspect]
     Active Substance: IRON
     Indication: ANAEMIA
     Dosage: 0/50/50 MG/WK (BEFORE THE PREGNANCY/AT THE START OF MIDTRIMESTER/AT THE END OF PREGNANCY)
     Route: 064

REACTIONS (9)
  - Intraventricular haemorrhage neonatal [Unknown]
  - Patent ductus arteriosus [Unknown]
  - Premature baby [Unknown]
  - Maternal exposure timing unspecified [Unknown]
  - Cardiac failure [Unknown]
  - Bronchopulmonary dysplasia [Unknown]
  - Persistent foetal circulation [Unknown]
  - Neonatal respiratory distress syndrome [Unknown]
  - Low birth weight baby [Unknown]
